FAERS Safety Report 15111031 (Version 1)
Quarter: 2018Q3

REPORT INFORMATION
  Report Type: Spontaneous
  Country: US (occurrence: US)
  Receive Date: 20180705
  Receipt Date: 20180705
  Transmission Date: 20181010
  Serious: Yes (Hospitalization)
  Sender: FDA-Public Use
  Company Number: US-INTERCEPT-PMOCA2018001057

PATIENT

DRUGS (1)
  1. OCALIVA [Suspect]
     Active Substance: OBETICHOLIC ACID
     Indication: PRIMARY BILIARY CHOLANGITIS
     Dosage: 5 MG, QD
     Route: 048
     Dates: start: 20180615, end: 20180615

REACTIONS (3)
  - Hyperammonaemia [Unknown]
  - Splenomegaly [Unknown]
  - Pruritus [Unknown]

NARRATIVE: CASE EVENT DATE: 20180615
